FAERS Safety Report 9752317 (Version 1)
Quarter: 2013Q4

REPORT INFORMATION
  Report Type: Spontaneous
  Country: IT (occurrence: None)
  Receive Date: 20131211
  Receipt Date: 20131211
  Transmission Date: 20140711
  Serious: Yes (Life-Threatening, Hospitalization)
  Sender: FDA-Public Use
  Company Number: 2013AP010200

PATIENT
  Age: 89 Year
  Sex: Female

DRUGS (3)
  1. CITALOPRAM [Suspect]
     Indication: DEPRESSION
  2. LEVOSULPIRIDE (LEVOSULPIRIDE) [Suspect]
     Indication: DYSPEPSIA
  3. RAMIPRIL [Concomitant]

REACTIONS (7)
  - Electrocardiogram QT prolonged [None]
  - Cardiac arrest [None]
  - Ventricular tachycardia [None]
  - Drug interaction [None]
  - Palpitations [None]
  - Syncope [None]
  - Circulatory collapse [None]
